FAERS Safety Report 13177798 (Version 2)
Quarter: 2017Q2

REPORT INFORMATION
  Report Type: Spontaneous
  Country: US (occurrence: US)
  Receive Date: 20170201
  Receipt Date: 20170504
  Transmission Date: 20170830
  Serious: No
  Sender: FDA-Public Use
  Company Number: US-CELGENEUS-USA-2017017835

PATIENT
  Sex: Female

DRUGS (1)
  1. REVLIMID [Suspect]
     Active Substance: LENALIDOMIDE
     Indication: PLASMA CELL MYELOMA
     Dosage: 25 MILLIGRAM
     Route: 048
     Dates: start: 20161103

REACTIONS (4)
  - Blood urine present [Not Recovered/Not Resolved]
  - Rash pruritic [Not Recovered/Not Resolved]
  - Cystitis [Not Recovered/Not Resolved]
  - Dysphonia [Not Recovered/Not Resolved]
